FAERS Safety Report 4897260-X (Version None)
Quarter: 2005Q4

REPORT INFORMATION
  Report Type: 
  Country: None (occurrence: None)
  Receive Date: 20051223
  Receipt Date: 20050929
  Transmission Date: 20060501
  Serious: No
  Sender: FDA-Public Use
  Company Number: 05P-163-0312687-00

PATIENT
  Age: 96 Year
  Sex: Female

DRUGS (3)
  1. HUMIRA [Suspect]
     Indication: RHEUMATOID ARTHRITIS
     Dosage: 40 MG, 1 IN 1 D, SUBCUTANEOUS
     Route: 058
     Dates: start: 20050701, end: 20050901
  2. CELECOXIB [Concomitant]
  3. PREDNISONE [Concomitant]

REACTIONS (1)
  - DRUG INEFFECTIVE [None]
